FAERS Safety Report 9717437 (Version 2)
Quarter: 2015Q3

REPORT INFORMATION
  Report Type: Spontaneous
  Country: US (occurrence: US)
  Receive Date: 20131127
  Receipt Date: 20150803
  Transmission Date: 20151125
  Serious: No
  Sender: FDA-Public Use
  Company Number: US-GILEAD-2008-0019670

PATIENT
  Age: 72 Year
  Sex: Female

DRUGS (9)
  1. VENTAVIS [Concomitant]
     Active Substance: ILOPROST
  2. ALLEGRA-D [Concomitant]
     Active Substance: FEXOFENADINE\PSEUDOEPHEDRINE
  3. RED YEAST RICE [Concomitant]
     Active Substance: DIETARY SUPPLEMENT
  4. HYDROCHLOROTHIAZIDE/LOSARTAN POTASSIUM [Concomitant]
  5. LETAIRIS [Suspect]
     Active Substance: AMBRISENTAN
     Indication: PULMONARY ARTERIAL HYPERTENSION
     Route: 048
     Dates: start: 20081014, end: 20081223
  6. TENORMIN [Concomitant]
     Active Substance: ATENOLOL
  7. GLUCOSE [Concomitant]
     Active Substance: DEXTROSE
  8. IRON [Concomitant]
     Active Substance: IRON
  9. RHINOCORT AQUA [Concomitant]
     Active Substance: BUDESONIDE

REACTIONS (1)
  - Peripheral swelling [Unknown]
